FAERS Safety Report 8396039-4 (Version None)
Quarter: 2012Q2

REPORT INFORMATION
  Report Type: 
  Country: None (occurrence: None)
  Receive Date: 20120530
  Receipt Date: 20120529
  Transmission Date: 20120825
  Serious: No
  Sender: FDA-Public Use
  Company Number: US-PFIZER INC-2012129695

PATIENT
  Sex: Female
  Weight: 77.098 kg

DRUGS (4)
  1. LYRICA [Suspect]
     Indication: GAIT DISTURBANCE
     Dosage: 100 MG, 2X/DAY
     Route: 048
     Dates: start: 20120101, end: 20120401
  2. METFORMIN [Concomitant]
     Indication: DIABETES MELLITUS
     Dosage: 100 MG, 2X/DAY
  3. LYRICA [Suspect]
     Indication: DIABETIC NEUROPATHY
     Dosage: 100 MG, 3X/DAY
     Route: 048
  4. ZOCOR [Concomitant]
     Indication: BLOOD CHOLESTEROL
     Dosage: 40 MG, DAILY

REACTIONS (2)
  - GAIT DISTURBANCE [None]
  - DRUG ADMINISTRATION ERROR [None]
